FAERS Safety Report 7877285-2 (Version None)
Quarter: 2011Q4

REPORT INFORMATION
  Report Type: 
  Country: None (occurrence: None)
  Receive Date: 20111031
  Receipt Date: 20111026
  Transmission Date: 20120403
  Serious: Yes (Other)
  Sender: FDA-Public Use
  Company Number: JP-ABBOTT-11P-087-0841746-00

PATIENT
  Sex: Male
  Weight: 62 kg

DRUGS (8)
  1. HUMIRA [Suspect]
     Indication: CROHN'S DISEASE
     Route: 058
     Dates: start: 20110519, end: 20110519
  2. HUMIRA [Suspect]
     Dates: start: 20110616
  3. AZATHIOPRINE [Concomitant]
     Indication: CROHN'S DISEASE
     Dates: end: 20110701
  4. NUTRITION [Concomitant]
     Indication: PRODUCT USED FOR UNKNOWN INDICATION
     Route: 051
  5. LANSOPRAZOLE [Concomitant]
     Indication: GASTROOESOPHAGEAL REFLUX DISEASE
     Route: 048
  6. MESALAMINE [Concomitant]
     Indication: CROHN'S DISEASE
     Route: 048
  7. EPINASTINE HYDROCHLORIDE [Concomitant]
     Indication: RHINITIS ALLERGIC
     Route: 048
  8. HUMIRA [Suspect]
     Dates: start: 20110602, end: 20110602

REACTIONS (6)
  - COUGH [None]
  - PRODUCTIVE COUGH [None]
  - MALAISE [None]
  - C-REACTIVE PROTEIN INCREASED [None]
  - PYREXIA [None]
  - DYSGEUSIA [None]
